FAERS Safety Report 12361771 (Version 1)
Quarter: 2016Q2

REPORT INFORMATION
  Report Type: Spontaneous
  Country: US (occurrence: US)
  Receive Date: 20160512
  Receipt Date: 20160512
  Transmission Date: 20160815
  Serious: No
  Sender: FDA-Public Use
  Company Number: US-SA-2016SA082991

PATIENT
  Age: 71 Year
  Sex: Female

DRUGS (19)
  1. ASPIRIN. [Concomitant]
     Active Substance: ASPIRIN
  2. LANTUS [Concomitant]
     Active Substance: INSULIN GLARGINE
  3. TYLENOL [Concomitant]
     Active Substance: ACETAMINOPHEN
  4. ZYRTEC [Concomitant]
     Active Substance: CETIRIZINE HYDROCHLORIDE
  5. VITAMIN E [Concomitant]
     Active Substance: .ALPHA.-TOCOPHEROL
  6. COQ10 [Concomitant]
     Active Substance: UBIDECARENONE
  7. NORVASC [Concomitant]
     Active Substance: AMLODIPINE BESYLATE
  8. HYDROCHLOROTHIAZIDE/VALSARTAN [Concomitant]
  9. TOPROL XL [Concomitant]
     Active Substance: METOPROLOL SUCCINATE
  10. BRILINTA [Concomitant]
     Active Substance: TICAGRELOR
  11. ALIROCUMAB PREFILLED PEN [Concomitant]
     Active Substance: ALIROCUMAB
     Indication: HYPERCHOLESTEROLAEMIA
  12. FISH OIL [Concomitant]
     Active Substance: FISH OIL
  13. GABAPENTIN. [Concomitant]
     Active Substance: GABAPENTIN
  14. NOVOLOG [Concomitant]
     Active Substance: INSULIN ASPART
  15. PRALUENT [Suspect]
     Active Substance: ALIROCUMAB
     Indication: HYPERCHOLESTEROLAEMIA
     Route: 058
  16. VITAMIN D3 [Concomitant]
     Active Substance: CHOLECALCIFEROL
  17. VITAMIN B12 [Concomitant]
     Active Substance: CYANOCOBALAMIN
  18. VICTOZA [Concomitant]
     Active Substance: LIRAGLUTIDE
  19. FLEXPEN [Concomitant]
     Active Substance: UNSPECIFIED INGREDIENT

REACTIONS (1)
  - Injection site bruising [Unknown]
